FAERS Safety Report 14853624 (Version 6)
Quarter: 2018Q3

REPORT INFORMATION
  Report Type: Report from Study
  Country: NL (occurrence: NL)
  Receive Date: 20180507
  Receipt Date: 20180822
  Transmission Date: 20181010
  Serious: Yes (Hospitalization, Other)
  Sender: FDA-Public Use
  Company Number: NL-PFIZER INC-2018186324

PATIENT
  Age: 71 Year
  Sex: Male

DRUGS (4)
  1. CISPLATIN. [Suspect]
     Active Substance: CISPLATIN
     Indication: CHRONIC LYMPHOCYTIC LEUKAEMIA
     Dosage: UNK, CYCLIC (1 CYCLE)
  2. DEXAMETHASONE. [Suspect]
     Active Substance: DEXAMETHASONE
     Indication: CHRONIC LYMPHOCYTIC LEUKAEMIA
     Dosage: UNK, CYCLIC (1 CYCLE)
  3. CYTARABINE. [Suspect]
     Active Substance: CYTARABINE
     Indication: CHRONIC LYMPHOCYTIC LEUKAEMIA
     Dosage: UNK, CYCLIC (1 CYCLE)
  4. RITUXIMAB. [Suspect]
     Active Substance: RITUXIMAB
     Indication: CHRONIC LYMPHOCYTIC LEUKAEMIA
     Dosage: UNK, CYCLIC (1 CYCLE)

REACTIONS (2)
  - Haematotoxicity [Unknown]
  - Pneumonia escherichia [Unknown]
